FAERS Safety Report 20745417 (Version 1)
Quarter: 2022Q2

REPORT INFORMATION
  Report Type: Spontaneous
  Country: FR (occurrence: FR)
  Receive Date: 20220425
  Receipt Date: 20220425
  Transmission Date: 20220720
  Serious: Yes (Hospitalization)
  Sender: FDA-Public Use
  Company Number: None

PATIENT
  Age: 32 Year
  Sex: Female

DRUGS (6)
  1. CHORIOGONADOTROPIN ALFA [Suspect]
     Active Substance: CHORIOGONADOTROPIN ALFA
     Indication: Assisted fertilisation
     Dosage: POWDER AND SOLVENT FOR SOLUTION FOR INJECTION
     Route: 058
     Dates: start: 20210125, end: 20210125
  2. PROGESTERONE [Suspect]
     Active Substance: PROGESTERONE
     Indication: Assisted fertilisation
     Dosage: SOFT CAPSULE OR SOFT VAGINAL?CAPSULE
     Route: 048
     Dates: start: 20210127, end: 20210211
  3. FOLLITROPIN ALFA [Suspect]
     Active Substance: FOLLITROPIN ALFA
     Indication: Assisted fertilisation
     Route: 058
     Dates: start: 20210218, end: 20210225
  4. ESTRADIOL [Suspect]
     Active Substance: ESTRADIOL
     Indication: Assisted fertilisation
     Route: 048
     Dates: start: 20210128, end: 20210211
  5. ASPIRIN DL-LYSINE [Concomitant]
     Active Substance: ASPIRIN DL-LYSINE
     Indication: Assisted fertilisation
     Dosage: POWDER FOR ORAL SOLUTION IN SACHET-DOSE
     Route: 048
     Dates: start: 20210201, end: 20210211
  6. LEVOTHYROXINE [Concomitant]
     Active Substance: LEVOTHYROXINE
     Indication: Thyroid disorder
     Dosage: SCORED TABLET
     Route: 048
     Dates: start: 201912

REACTIONS (1)
  - Deafness unilateral [Recovered/Resolved]

NARRATIVE: CASE EVENT DATE: 20210221
